FAERS Safety Report 7572239-8 (Version None)
Quarter: 2011Q2

REPORT INFORMATION
  Report Type: 
  Country: None (occurrence: None)
  Receive Date: 20110624
  Receipt Date: 20110613
  Transmission Date: 20111010
  Serious: Yes (Hospitalization, Other)
  Sender: FDA-Public Use
  Company Number: PHHY2011BR52965

PATIENT
  Sex: Female

DRUGS (1)
  1. EXELON [Suspect]
     Dosage: 4.6 MG/24 H (9MG/5CM^2)
     Route: 062

REACTIONS (4)
  - GAIT DISTURBANCE [None]
  - PARKINSON'S DISEASE [None]
  - HYPERTENSION [None]
  - DEMENTIA ALZHEIMER'S TYPE [None]
